FAERS Safety Report 5919756-1 (Version None)
Quarter: 2008Q4

REPORT INFORMATION
  Report Type: 
  Country: None (occurrence: None)
  Receive Date: 20081015
  Receipt Date: 20081007
  Transmission Date: 20090506
  Serious: Yes (Death, Hospitalization, Other)
  Sender: FDA-Public Use
  Company Number: JP-PFIZER INC-2008066648

PATIENT
  Sex: Male
  Weight: 60 kg

DRUGS (17)
  1. LIPITOR [Suspect]
     Indication: HYPERLIPIDAEMIA
     Dosage: DAILY DOSE:10MG
     Route: 048
     Dates: end: 20080704
  2. ALLOPURINOL [Suspect]
     Indication: HYPERURICAEMIA
     Dosage: DAILY DOSE:100MG
     Route: 048
     Dates: end: 20080704
  3. BLOPRESS [Suspect]
     Indication: HYPERTENSION
     Dosage: DAILY DOSE:4MG
     Route: 048
     Dates: end: 20080704
  4. OMEPRAZOLE [Suspect]
     Indication: REFLUX OESOPHAGITIS
     Dosage: DAILY DOSE:20MG
     Route: 048
     Dates: end: 20080704
  5. PLAVIX [Concomitant]
     Route: 048
     Dates: end: 20080814
  6. ALFAROL [Concomitant]
     Route: 048
  7. SEVELAMER HYDROCHLORIDE [Concomitant]
     Route: 048
  8. INSULIN DETEMIR [Concomitant]
     Route: 058
  9. NOVOLIN R [Concomitant]
     Route: 058
  10. LASIX [Concomitant]
     Route: 048
     Dates: end: 20080714
  11. ITOROL [Concomitant]
     Route: 048
     Dates: end: 20080814
  12. POLARAMINE [Concomitant]
     Route: 048
     Dates: end: 20080814
  13. ALLELOCK [Concomitant]
     Route: 048
     Dates: end: 20080814
  14. URSO 250 [Concomitant]
     Route: 048
     Dates: end: 20080814
  15. LAXOBERON [Concomitant]
     Route: 048
  16. CALONAL [Concomitant]
     Route: 048
  17. VANCOMYCIN HYDROCHLORIDE [Concomitant]
     Route: 048
     Dates: end: 20080708

REACTIONS (10)
  - ASTHENIA [None]
  - HYPERBILIRUBINAEMIA [None]
  - JAUNDICE [None]
  - LIVER DISORDER [None]
  - NASOPHARYNGITIS [None]
  - PERITONITIS [None]
  - PNEUMONIA [None]
  - RESPIRATORY FAILURE [None]
  - RHABDOMYOLYSIS [None]
  - STEVENS-JOHNSON SYNDROME [None]
